FAERS Safety Report 19058551 (Version 1)
Quarter: 2021Q1

REPORT INFORMATION
  Report Type: Spontaneous
  Country: US (occurrence: US)
  Receive Date: 20210325
  Receipt Date: 20210325
  Transmission Date: 20210420
  Serious: Yes (Hospitalization)
  Sender: FDA-Public Use
  Company Number: US-SA-2021SA096657

PATIENT
  Age: 62 Year
  Sex: Female

DRUGS (15)
  1. MONTELUKAST [Concomitant]
     Active Substance: MONTELUKAST SODIUM
  2. DULOXETINE. [Concomitant]
     Active Substance: DULOXETINE
  3. COMBIVENT [Concomitant]
     Active Substance: ALBUTEROL SULFATE\IPRATROPIUM BROMIDE
  4. GABAPENTIN. [Concomitant]
     Active Substance: GABAPENTIN
  5. DUPIXENT [Suspect]
     Active Substance: DUPILUMAB
     Indication: ASTHMA
     Route: 058
     Dates: start: 20201014
  6. FISH OIL [Concomitant]
     Active Substance: FISH OIL
  7. ALBUTEROL;IPRATROPIUM [Concomitant]
     Active Substance: ALBUTEROL\IPRATROPIUM
  8. ACETAMINOPHEN;HYDROCODONE [Concomitant]
     Active Substance: ACETAMINOPHEN\HYDROCODONE
  9. NOVOLOG [Concomitant]
     Active Substance: INSULIN ASPART
  10. SYMBICORT [Concomitant]
     Active Substance: BUDESONIDE\FORMOTEROL FUMARATE DIHYDRATE
  11. SPIRONOLACTONE. [Concomitant]
     Active Substance: SPIRONOLACTONE
  12. PREDNISONE. [Concomitant]
     Active Substance: PREDNISONE
  13. BROVANA [Concomitant]
     Active Substance: ARFORMOTEROL TARTRATE
  14. LANTUS [Concomitant]
     Active Substance: INSULIN GLARGINE
  15. PANTOPRAZOLE [Concomitant]
     Active Substance: PANTOPRAZOLE

REACTIONS (4)
  - Mobility decreased [Unknown]
  - Product use issue [Unknown]
  - Surgery [Unknown]
  - Dysgraphia [Unknown]

NARRATIVE: CASE EVENT DATE: 20201014
